FAERS Safety Report 13951361 (Version 2)
Quarter: 2017Q3

REPORT INFORMATION
  Report Type: Spontaneous
  Country: US (occurrence: US)
  Receive Date: 20170908
  Receipt Date: 20170918
  Transmission Date: 20171128
  Serious: Yes (Hospitalization)
  Sender: FDA-Public Use
  Company Number: US-PFIZER INC-2017342997

PATIENT
  Age: 22 Year
  Sex: Female
  Weight: 117.93 kg

DRUGS (2)
  1. CHAPSTICK CLASSIC STRAWBERRY [Suspect]
     Active Substance: PETROLATUM
     Indication: CHAPPED LIPS
     Dosage: APPLIED TO HER LIPS
     Route: 061
     Dates: start: 20170804
  2. CHAPSTICK CLASSIC STRAWBERRY [Suspect]
     Active Substance: PETROLATUM
     Indication: LIP DRY

REACTIONS (6)
  - Pruritus [Recovered/Resolved]
  - Condition aggravated [Recovered/Resolved]
  - Lip pruritus [Recovered/Resolved]
  - Burning sensation [Not Recovered/Not Resolved]
  - Lip swelling [Recovered/Resolved]
  - Lip erythema [Recovered/Resolved]

NARRATIVE: CASE EVENT DATE: 201708
